FAERS Safety Report 21640462 (Version 2)
Quarter: 2023Q4

REPORT INFORMATION
  Report Type: Report from Study
  Country: US (occurrence: US)
  Receive Date: 20221124
  Receipt Date: 20231121
  Transmission Date: 20240110
  Serious: Yes (Death, Other)
  Sender: FDA-Public Use
  Company Number: US-ACADIA PHARMACEUTICALS INC.-ACA-2022-PIM-003768

PATIENT
  Age: 59 Year
  Sex: Male

DRUGS (15)
  1. NUPLAZID [Suspect]
     Active Substance: PIMAVANSERIN TARTRATE
     Indication: Parkinson^s disease
     Dosage: 34 MILLIGRAM, QD
     Route: 048
     Dates: start: 202202, end: 2022
  2. NUPLAZID [Suspect]
     Active Substance: PIMAVANSERIN TARTRATE
     Dosage: 34 MILLIGRAM, QD
     Route: 048
  3. MORPHINE [Concomitant]
     Active Substance: MORPHINE
  4. CARBIDOPA [Concomitant]
     Active Substance: CARBIDOPA
  5. AMANTADINE [Concomitant]
     Active Substance: AMANTADINE
     Dosage: 100 MILLIGRAM
  6. RASAGILINE [Concomitant]
     Active Substance: RASAGILINE
     Dosage: UNK
  7. MELATONIN [Concomitant]
     Active Substance: MELATONIN
     Dosage: 10 MILLIGRAM
     Route: 060
  8. QUETIAPINE [Concomitant]
     Active Substance: QUETIAPINE
  9. SERTRALINE HYDROCHLORIDE [Concomitant]
     Active Substance: SERTRALINE HYDROCHLORIDE
     Dosage: 100 MILLIGRAM
  10. LORAZEPAM [Concomitant]
     Active Substance: LORAZEPAM
     Dosage: 0.5 MG
  11. MORPHINE SULFATE [Concomitant]
     Active Substance: MORPHINE SULFATE
     Dosage: 0.9 %
  12. SODIUM CHLORIDE [Concomitant]
     Active Substance: SODIUM CHLORIDE
  13. CARBIDOPA, LEVODOPA AND ENTACAPONE [Concomitant]
     Active Substance: CARBIDOPA\ENTACAPONE\LEVODOPA
  14. QUETIAPINE FUMARATE [Concomitant]
     Active Substance: QUETIAPINE FUMARATE
     Dosage: 25 MILLIGRAM
  15. RASAGILINE MESYLATE [Concomitant]
     Active Substance: RASAGILINE MESYLATE
     Dosage: 1 MILLIGRAM

REACTIONS (5)
  - Death [Fatal]
  - Product dose omission issue [Unknown]
  - Delusion [Unknown]
  - Paranoia [Unknown]
  - Hallucination [Unknown]

NARRATIVE: CASE EVENT DATE: 20231021
